FAERS Safety Report 16457760 (Version 1)
Quarter: 2019Q2

REPORT INFORMATION
  Report Type: Spontaneous
  Country: US (occurrence: US)
  Receive Date: 20190620
  Receipt Date: 20190620
  Transmission Date: 20190711
  Serious: Yes (Other)
  Sender: FDA-Public Use
  Company Number: US-BIOGEN-2019BI00751597

PATIENT
  Age: 42 Year
  Sex: Female

DRUGS (1)
  1. TYSABRI [Suspect]
     Active Substance: NATALIZUMAB
     Indication: MULTIPLE SCLEROSIS
     Route: 042
     Dates: start: 20180602, end: 20190101

REACTIONS (4)
  - Tremor [Unknown]
  - Hemianaesthesia [Unknown]
  - Suicidal ideation [Unknown]
  - Balance disorder [Unknown]

NARRATIVE: CASE EVENT DATE: 20190101
